FAERS Safety Report 7425934-5 (Version None)
Quarter: 2011Q2

REPORT INFORMATION
  Report Type: 
  Country: None (occurrence: None)
  Receive Date: 20110420
  Receipt Date: 20110218
  Transmission Date: 20111010
  Serious: Yes (Other)
  Sender: FDA-Public Use
  Company Number: US-BAYER-200929358NA

PATIENT
  Sex: Male

DRUGS (14)
  1. DAPTOMYCIN [Concomitant]
     Dosage: UNK
     Dates: start: 20050211
  2. PACKED RED BLOOD CELLS [Concomitant]
     Dosage: 4 UNITSUNK
     Dates: start: 20050124
  3. FRESH FROZEN PLASMA [Concomitant]
     Dosage: 2 UNITS
     Dates: start: 20050124
  4. PLATELETS [Concomitant]
     Dosage: 2 UNITS
     Dates: start: 20050124
  5. INSULIN [Concomitant]
     Dosage: UNK
     Dates: start: 20050124, end: 20050124
  6. OPTIRAY 350 [Concomitant]
     Indication: CATHETERISATION CARDIAC
     Dosage: 21 ML, UNK
     Dates: start: 20050121
  7. TRASYLOL [Suspect]
     Indication: CORONARY ARTERY BYPASS
     Dosage: UNK
     Route: 042
     Dates: start: 20050124, end: 20050124
  8. TRASYLOL [Suspect]
     Indication: CARDIAC PACEMAKER REMOVAL
  9. EPINEPHRINE [Concomitant]
     Dosage: UNK
     Dates: start: 20050124, end: 20050124
  10. BACITRACIN [Concomitant]
     Dosage: UNK
     Dates: start: 20050124, end: 20050124
  11. TRASYLOL [Suspect]
     Indication: MITRAL VALVE REPLACEMENT
  12. TRASYLOL [Suspect]
     Indication: TRICUSPID VALVE REPAIR
  13. TRASYLOL [Suspect]
     Indication: AORTIC VALVE REPLACEMENT
  14. HEPARIN [Concomitant]
     Dosage: UNK
     Dates: start: 20050124, end: 20050124

REACTIONS (12)
  - RENAL INJURY [None]
  - RENAL FAILURE [None]
  - INJURY [None]
  - STRESS [None]
  - ANXIETY [None]
  - FEAR [None]
  - RENAL IMPAIRMENT [None]
  - PAIN [None]
  - MULTI-ORGAN FAILURE [None]
  - EMOTIONAL DISTRESS [None]
  - UNEVALUABLE EVENT [None]
  - ANHEDONIA [None]
